FAERS Safety Report 10262354 (Version 2)
Quarter: 2014Q3

REPORT INFORMATION
  Report Type: Spontaneous
  Country: IT (occurrence: IT)
  Receive Date: 20140626
  Receipt Date: 20140804
  Transmission Date: 20150326
  Serious: Yes (Other)
  Sender: FDA-Public Use
  Company Number: IT-ACTAVIS-2014-13535

PATIENT
  Age: 83 Year
  Sex: Female

DRUGS (8)
  1. ALPRAZOLAM (UNKNOWN) [Suspect]
     Active Substance: ALPRAZOLAM
     Indication: ANXIOLYTIC THERAPY
     Dosage: UNK
     Route: 048
     Dates: start: 20140101, end: 20140518
  2. KOLIBRI [Concomitant]
     Active Substance: ACETAMINOPHEN\TRAMADOL HYDROCHLORIDE
     Indication: PRODUCT USED FOR UNKNOWN INDICATION
     Dosage: UNK
     Route: 048
  3. PROCAPTAN [Concomitant]
     Active Substance: PERINDOPRIL ERBUMINE
     Indication: PRODUCT USED FOR UNKNOWN INDICATION
     Dosage: UNK
     Route: 065
  4. CALCITRIOL. [Concomitant]
     Active Substance: CALCITRIOL
     Indication: PRODUCT USED FOR UNKNOWN INDICATION
     Route: 048
  5. DAFLON                             /00426001/ [Concomitant]
     Active Substance: DIOSMIN
     Indication: PRODUCT USED FOR UNKNOWN INDICATION
     Dosage: 500 MG, UNK
     Route: 048
  6. LYRICA [Concomitant]
     Active Substance: PREGABALIN
     Indication: PRODUCT USED FOR UNKNOWN INDICATION
     Dosage: UNK
     Route: 048
  7. SIMVASTATIN. [Concomitant]
     Active Substance: SIMVASTATIN
     Indication: PRODUCT USED FOR UNKNOWN INDICATION
     Dosage: UNK
     Route: 065
  8. COUMADIN [Concomitant]
     Active Substance: WARFARIN SODIUM
     Indication: PRODUCT USED FOR UNKNOWN INDICATION
     Dosage: 5 MG, UNK
     Route: 048

REACTIONS (5)
  - Medication error [Recovered/Resolved]
  - Dysstasia [Recovered/Resolved]
  - Incorrect dose administered [Recovered/Resolved]
  - Asthenia [Recovered/Resolved]
  - Poisoning [Recovered/Resolved]

NARRATIVE: CASE EVENT DATE: 20140518
